FAERS Safety Report 5381319-7 (Version None)
Quarter: 2007Q2

REPORT INFORMATION
  Report Type: 
  Country: None (occurrence: None)
  Receive Date: 20070629
  Receipt Date: 20070205
  Transmission Date: 20071010
  Serious: Yes (Other)
  Sender: FDA-Public Use
  Company Number: HQWYE958408FEB07

PATIENT
  Age: 67 Year
  Sex: Female
  Weight: 48.12 kg

DRUGS (3)
  1. AXID AR [Suspect]
     Indication: GASTROOESOPHAGEAL REFLUX DISEASE
     Dosage: 1 DOSE ONCE, ORAL
     Route: 048
     Dates: start: 20060203, end: 20060203
  2. AXID AR [Suspect]
     Indication: STOMACH DISCOMFORT
     Dosage: 1 DOSE ONCE, ORAL
     Route: 048
     Dates: start: 20060203, end: 20060203
  3. MAALOX (ALUMINUM HYDROXIDE GEL/MAGNESIUM HYDROXIDE) [Concomitant]

REACTIONS (2)
  - PAIN IN EXTREMITY [None]
  - PARAESTHESIA [None]
